FAERS Safety Report 10970980 (Version 1)
Quarter: 2015Q1

REPORT INFORMATION
  Report Type: Spontaneous
  Country: US (occurrence: None)
  Receive Date: 20150330
  Receipt Date: 20150330
  Transmission Date: 20150721
  Serious: Yes (Hospitalization)
  Sender: FDA-Public Use
  Company Number: None

PATIENT
  Age: 63 Year
  Sex: Female
  Weight: 85.27 kg

DRUGS (1)
  1. BEVACIZUMAB (RHUMAB VEGF) [Suspect]
     Active Substance: BEVACIZUMAB
     Dates: start: 20150310

REACTIONS (9)
  - Cough [None]
  - Partial seizures [None]
  - Internal haemorrhage [None]
  - Vomiting [None]
  - Nasopharyngitis [None]
  - Insomnia [None]
  - Nodule [None]
  - Nausea [None]
  - Upper respiratory tract infection [None]

NARRATIVE: CASE EVENT DATE: 20150319
